FAERS Safety Report 9453032 (Version 3)
Quarter: 2014Q2

REPORT INFORMATION
  Report Type: Spontaneous
  Country: US (occurrence: US)
  Receive Date: 20130812
  Receipt Date: 20140611
  Transmission Date: 20141212
  Serious: No
  Sender: FDA-Public Use
  Company Number: US-009507513-1308USA001947

PATIENT
  Sex: Male

DRUGS (1)
  1. PROPECIA [Suspect]
     Indication: ANDROGENETIC ALOPECIA
     Dosage: 1 MG, UNK
     Route: 048
     Dates: start: 20011102, end: 20021102

REACTIONS (18)
  - Cognitive disorder [Not Recovered/Not Resolved]
  - Sexual dysfunction [Not Recovered/Not Resolved]
  - Erectile dysfunction [Unknown]
  - Muscular weakness [Unknown]
  - Muscle atrophy [Unknown]
  - Epididymal disorder [Unknown]
  - Prostatic pain [Unknown]
  - Muscle twitching [Unknown]
  - Fatigue [Unknown]
  - Gynaecomastia [Unknown]
  - Testicular pain [Not Recovered/Not Resolved]
  - Epididymal cyst [Unknown]
  - Back pain [Unknown]
  - Scrotal pain [Unknown]
  - Libido decreased [Recovered/Resolved]
  - Intervertebral disc protrusion [Unknown]
  - Rhinitis allergic [Unknown]
  - Orgasmic sensation decreased [Unknown]
